FAERS Safety Report 11846402 (Version 1)
Quarter: 2015Q4

REPORT INFORMATION
  Report Type: Spontaneous
  Country: US (occurrence: US)
  Receive Date: 20151217
  Receipt Date: 20151217
  Transmission Date: 20160305
  Serious: No
  Sender: FDA-Public Use
  Company Number: US-FRESENIUS KABI-FK201500778

PATIENT
  Sex: Female

DRUGS (1)
  1. PROPOFOL INJECTABLE EMULSION 1% (PROPOFOL, PROPOFOL) (PROPOFOL, PROPOFOL) [Suspect]
     Active Substance: PROPOFOL
     Indication: INDUCTION OF ANAESTHESIA
     Route: 065

REACTIONS (2)
  - Therapy change [None]
  - Drug ineffective [Recovered/Resolved]
